FAERS Safety Report 20314126 (Version 1)
Quarter: 2022Q1

REPORT INFORMATION
  Report Type: Spontaneous
  Country: US (occurrence: US)
  Receive Date: 20220109
  Receipt Date: 20220109
  Transmission Date: 20220423
  Serious: No
  Sender: FDA-Public Use
  Company Number: US-SA-SAC20220104001162

PATIENT
  Age: 44 Year
  Sex: Female

DRUGS (1)
  1. DUPIXENT [Suspect]
     Active Substance: DUPILUMAB
     Indication: Asthma
     Route: 058
     Dates: start: 20210122

REACTIONS (4)
  - Skin swelling [Not Recovered/Not Resolved]
  - Skin irritation [Unknown]
  - Dermal cyst [Unknown]
  - Product use issue [Unknown]

NARRATIVE: CASE EVENT DATE: 20210122
